FAERS Safety Report 8826412 (Version 1)
Quarter: 2012Q4

REPORT INFORMATION
  Report Type: 
  Country: KR (occurrence: KR)
  Receive Date: 20121005
  Receipt Date: 20121005
  Transmission Date: 20130627
  Serious: Yes (Life-Threatening, Other)
  Sender: FDA-Public Use
  Company Number: KR-ASTRAZENECA-2012SE75978

PATIENT
  Age: 48 Year
  Sex: Female

DRUGS (2)
  1. MEPIVACAINE [Suspect]
     Indication: LOCAL ANAESTHESIA
     Route: 008
  2. MEPIVACAINE [Suspect]
     Indication: EPIDURAL INJECTION
     Route: 008

REACTIONS (3)
  - Grand mal convulsion [Recovered/Resolved]
  - Respiratory arrest [Unknown]
  - Cardiac arrest [Unknown]
